FAERS Safety Report 19923913 (Version 1)
Quarter: 2021Q4

REPORT INFORMATION
  Report Type: Spontaneous
  Country: JP (occurrence: JP)
  Receive Date: 20211006
  Receipt Date: 20211006
  Transmission Date: 20220303
  Serious: Yes (Death, Other)
  Sender: FDA-Public Use
  Company Number: JP-BRECKENRIDGE PHARMACEUTICAL, INC.-2120243

PATIENT
  Age: 93 Year
  Sex: Female

DRUGS (4)
  1. LANSOPRAZOLE [Suspect]
     Active Substance: LANSOPRAZOLE
     Route: 048
     Dates: start: 202008, end: 202009
  2. SPIRONOLACTONE [Suspect]
     Active Substance: SPIRONOLACTONE
  3. FUROSEMIDE [Suspect]
     Active Substance: FUROSEMIDE
  4. CEFMETAZOLE SODIUM [Suspect]
     Active Substance: CEFMETAZOLE SODIUM

REACTIONS (2)
  - Toxic epidermal necrolysis [Fatal]
  - Death [Fatal]
